FAERS Safety Report 18516360 (Version 1)
Quarter: 2020Q4

REPORT INFORMATION
  Report Type: Report from Study
  Country: IN (occurrence: IN)
  Receive Date: 20201118
  Receipt Date: 20201118
  Transmission Date: 20210114
  Serious: Yes (Other)
  Sender: FDA-Public Use
  Company Number: IN-SA-2020SA320770

PATIENT

DRUGS (11)
  1. DEXAMETHASONE SALT NOT SPECIFIED [Suspect]
     Active Substance: DEXAMETHASONE
     Indication: IMMUNOSUPPRESSION
     Dosage: 25 MG/M2 FOR 4 DAYS (2 CYCLES FOR 3 WEEKS)
     Route: 042
  2. TACROLIMUS. [Concomitant]
     Active Substance: TACROLIMUS
     Indication: PROPHYLAXIS AGAINST GRAFT VERSUS HOST DISEASE
     Dosage: FROM DAY +5
  3. ANTI-THYMOCYTE GLOBULIN (RABBIT) NOS [Suspect]
     Active Substance: LAPINE T-LYMPHOCYTE IMMUNE GLOBULIN
     Indication: BONE MARROW CONDITIONING REGIMEN
     Dosage: 1.5 TO 2 MILLIGRAMS PER KILOGRAMS OF RECIPIENT BODY WEIGHT, QD FOR 3 DAYS (DAY-8,-7 AND -6)
  4. G-CSF [Concomitant]
     Active Substance: GRANULOCYTE COLONY-STIMULATING FACTOR NOS
     Dosage: 5 UG/KG, QD (FROM DAY +5)
  5. MESNA. [Concomitant]
     Active Substance: MESNA
     Dosage: 75 MG/KG, QD
  6. CYCLOPHOSPHAMIDE. [Suspect]
     Active Substance: CYCLOPHOSPHAMIDE
     Indication: BONE MARROW CONDITIONING REGIMEN
     Dosage: 14.5 MG/KG OF RECIPIENT BOODY WEIGHT, QD (DAY -5 AND  -4)
  7. THIOTEPA. [Suspect]
     Active Substance: THIOTEPA
     Indication: BONE MARROW CONDITIONING REGIMEN
     Dosage: 5 MG/KG, BID5 MG/KG OF RECIEPIENT BODY WEIGHT, BID (DAY -7)
  8. CYCLOPHOSPHAMIDE. [Suspect]
     Active Substance: CYCLOPHOSPHAMIDE
     Indication: PROPHYLAXIS AGAINST GRAFT VERSUS HOST DISEASE
     Dosage: 50 MG/KG, QD, ON DAY +3 AND DAY+4 AND IT WILL BE STARTED 72 HOURS FROM THE STEM CELL INFUSION
  9. FLUDARABINE PHOSPHATE. [Suspect]
     Active Substance: FLUDARABINE PHOSPHATE
     Indication: BONE MARROW CONDITIONING REGIMEN
     Dosage: 30 MG/M2, QD FOR FIVE DAYS (DAY -6 TO-2)`
  10. FLUDARABINE PHOSPHATE. [Suspect]
     Active Substance: FLUDARABINE PHOSPHATE
     Indication: IMMUNOSUPPRESSION
     Dosage: 40 MG/M2, QD, FOR 4 DAYS ( 2 CYCLES EVERY 3 WEEKS)
     Route: 042
  11. DESFERRIOXAMINE [DEFEROXAMINE] [Concomitant]
     Indication: TRANSFUSION
     Dosage: 40 MG/KG, QD
     Route: 042

REACTIONS (2)
  - Off label use [Unknown]
  - Parainfluenzae virus infection [Unknown]
